FAERS Safety Report 9252998 (Version 1)
Quarter: 2013Q1

REPORT INFORMATION
  Report Type: Spontaneous
  Country: US (occurrence: None)
  Receive Date: 20130305
  Receipt Date: 20130305
  Transmission Date: 20140127
  Serious: Yes (Other)
  Sender: FDA-Public Use
  Company Number: 163-201880-12090884

PATIENT
  Age: 70 Year
  Sex: Female
  Weight: 113.4 kg

DRUGS (13)
  1. REVLIMID (LENALIDOMIDE) (25 MILLIGRAM, CAPSULES) [Suspect]
     Dosage: 25MG, 21 IN 21 D, PO
     Route: 048
     Dates: start: 20120522
  2. ASPIRIN (UNKNOWN) [Concomitant]
  3. ATENOLOL (ATENOLOL) [Concomitant]
  4. DECADRON (DEXAMETHASONE) [Concomitant]
  5. DETROL (TOLTERODINE L-TARTRATE) [Concomitant]
  6. HYDROCHLOROTHIAZIDE (HYDROCHLOROTHIAZIDE) [Concomitant]
  7. MAALOX (MAALOX) [Concomitant]
  8. MICARDIS (TELMISARTAN) [Concomitant]
  9. MOTRIN (IBUPROFEN) [Concomitant]
  10. STOOL SOFTENER (DOCUSATE SODIUM) [Concomitant]
  11. SYMBICORT (SYMBICORT TURBUHALER) [Concomitant]
  12. VITAMIN D (ERGOCALCIFEROL) [Concomitant]
  13. ZOCOR (SIMVASTATIN) [Concomitant]

REACTIONS (2)
  - Muscle spasms [None]
  - Blood potassium decreased [None]
